FAERS Safety Report 5582130-4 (Version None)
Quarter: 2007Q4

REPORT INFORMATION
  Report Type: 
  Country: None (occurrence: None)
  Receive Date: 20071130
  Receipt Date: 20070814
  Transmission Date: 20080405
  Serious: No
  Sender: FDA-Public Use
  Company Number: US200708003135

PATIENT
  Age: 75 Year
  Sex: Female
  Weight: 92.1 kg

DRUGS (5)
  1. BYETTA [Suspect]
     Indication: TYPE 2 DIABETES MELLITUS
     Dosage: 10 UG, 2/D, SUBCUTANEOUS
     Route: 058
     Dates: start: 20060101, end: 20070101
  2. BYETTA [Suspect]
     Indication: TYPE 2 DIABETES MELLITUS
     Dosage: 10 UG, 2/D, SUBCUTANEOUS
     Route: 058
     Dates: start: 20070720
  3. METFORMIN HCL [Concomitant]
  4. AMARYL [Concomitant]
  5. INSULIN (INSULIN) [Concomitant]

REACTIONS (8)
  - BLOOD GLUCOSE INCREASED [None]
  - DIZZINESS [None]
  - DYSGEUSIA [None]
  - FALL [None]
  - FEELING ABNORMAL [None]
  - JOINT INJURY [None]
  - NON-CARDIAC CHEST PAIN [None]
  - WEIGHT DECREASED [None]
